FAERS Safety Report 11158499 (Version 2)
Quarter: 2015Q2

REPORT INFORMATION
  Report Type: Spontaneous
  Country: US (occurrence: US)
  Receive Date: 20150603
  Receipt Date: 20150612
  Transmission Date: 20150821
  Serious: Yes (Other)
  Sender: FDA-Public Use
  Company Number: US-PFIZER INC-2015181797

PATIENT
  Age: 50 Year
  Sex: Male

DRUGS (1)
  1. DILANTIN [Suspect]
     Active Substance: PHENYTOIN
     Indication: EPILEPSY
     Dosage: UNK, DAILY
     Route: 048

REACTIONS (4)
  - Dysphagia [Recovering/Resolving]
  - Diverticulum [Unknown]
  - Chemical injury [Unknown]
  - Drug administration error [Unknown]
